FAERS Safety Report 23738975 (Version 1)
Quarter: 2024Q2

REPORT INFORMATION
  Report Type: Report from Study
  Country: CA (occurrence: CA)
  Receive Date: 20240413
  Receipt Date: 20240413
  Transmission Date: 20240715
  Serious: Yes (Hospitalization)
  Sender: FDA-Public Use
  Company Number: CA-CELLTRION INC.-2024CA008602

PATIENT

DRUGS (1)
  1. TRUXIMA [Suspect]
     Active Substance: RITUXIMAB-ABBS
     Indication: Rheumatoid arthritis
     Dosage: 500 MILLIGRAM, DAY 1 AND 15
     Route: 042
     Dates: start: 20210715

REACTIONS (3)
  - Hospitalisation [Unknown]
  - Intentional dose omission [Unknown]
  - Underdose [Unknown]
